FAERS Safety Report 12739063 (Version 3)
Quarter: 2016Q4

REPORT INFORMATION
  Report Type: Spontaneous
  Country: US (occurrence: US)
  Receive Date: 20160912
  Receipt Date: 20161024
  Transmission Date: 20170207
  Serious: Yes (Other)
  Sender: FDA-Public Use
  Company Number: US-CELGENEUS-USA-2016091432

PATIENT
  Age: 75 Year
  Sex: Male

DRUGS (7)
  1. DECADRON [Concomitant]
     Active Substance: DEXAMETHASONE
     Indication: PRODUCT USED FOR UNKNOWN INDICATION
     Route: 065
     Dates: start: 20161015
  2. VELCADE [Concomitant]
     Active Substance: BORTEZOMIB
     Indication: PLASMA CELL MYELOMA
     Route: 058
     Dates: start: 20161015, end: 201610
  3. REVLIMID [Suspect]
     Active Substance: LENALIDOMIDE
     Route: 048
     Dates: start: 201605, end: 20161001
  4. REVLIMID [Suspect]
     Active Substance: LENALIDOMIDE
     Dosage: 4 MILLIGRAM
     Route: 048
     Dates: start: 20151020
  5. REVLIMID [Suspect]
     Active Substance: LENALIDOMIDE
     Indication: PLASMA CELL MYELOMA
     Route: 048
     Dates: start: 201111
  6. ZOMETA [Concomitant]
     Active Substance: ZOLEDRONIC ACID
     Indication: SUPPLEMENTATION THERAPY
     Dosage: 4 MILLIGRAM
     Route: 041
     Dates: start: 20160815, end: 20160919
  7. REVLIMID [Suspect]
     Active Substance: LENALIDOMIDE
     Route: 048
     Dates: start: 20161015

REACTIONS (1)
  - Rash [Recovering/Resolving]

NARRATIVE: CASE EVENT DATE: 201609
